FAERS Safety Report 22336204 (Version 1)
Quarter: 2023Q2

REPORT INFORMATION
  Report Type: Spontaneous
  Country: US (occurrence: None)
  Receive Date: 20230518
  Receipt Date: 20230518
  Transmission Date: 20230721
  Serious: No
  Sender: FDA-Public Use
  Company Number: US-ROCHE-3181014

PATIENT
  Sex: Female

DRUGS (4)
  1. ACTEMRA [Suspect]
     Active Substance: TOCILIZUMAB
     Indication: Polyarthritis
     Dosage: STRENGTH: 162 MG/0.9M?SUBSEQUENT DOSE ON 05/JUL/2022
     Route: 058
     Dates: start: 202201
  2. ACTEMRA [Suspect]
     Active Substance: TOCILIZUMAB
  3. ACTEMRA [Suspect]
     Active Substance: TOCILIZUMAB
  4. PREDNISONE [Concomitant]
     Active Substance: PREDNISONE

REACTIONS (6)
  - Joint swelling [Unknown]
  - Arthralgia [Unknown]
  - Condition aggravated [Unknown]
  - Headache [Unknown]
  - Off label use [Unknown]
  - Eye disorder [Unknown]
